FAERS Safety Report 10264040 (Version 2)
Quarter: 2014Q3

REPORT INFORMATION
  Report Type: Spontaneous
  Country: US (occurrence: US)
  Receive Date: 20140627
  Receipt Date: 20140714
  Transmission Date: 20150326
  Serious: No
  Sender: FDA-Public Use
  Company Number: US-BIOGENIDEC-2014BI060607

PATIENT
  Age: 53 Year
  Sex: Female

DRUGS (2)
  1. AVONEX [Suspect]
     Active Substance: INTERFERON BETA-1A
     Indication: MULTIPLE SCLEROSIS
     Route: 030
     Dates: start: 20091127
  2. AVONEX [Suspect]
     Active Substance: INTERFERON BETA-1A
     Indication: MULTIPLE SCLEROSIS
     Route: 030
     Dates: start: 20091201, end: 20140620

REACTIONS (7)
  - Venous injury [Unknown]
  - Haemorrhage [Recovered/Resolved]
  - Drug effect incomplete [Unknown]
  - Poor venous access [Unknown]
  - General symptom [Unknown]
  - Paraesthesia [Unknown]
  - Formication [Recovered/Resolved]

NARRATIVE: CASE EVENT DATE: 201402
